FAERS Safety Report 10438264 (Version 1)
Quarter: 2014Q3

REPORT INFORMATION
  Report Type: Spontaneous
  Country: US (occurrence: US)
  Receive Date: 20140908
  Receipt Date: 20140908
  Transmission Date: 20150326
  Serious: No
  Sender: FDA-Public Use
  Company Number: US-ELI_LILLY_AND_COMPANY-US201409002114

PATIENT

DRUGS (1)
  1. FORTEO [Suspect]
     Active Substance: TERIPARATIDE
     Indication: FRACTURE NONUNION
     Dosage: UNK UNK, QD
     Route: 065
     Dates: start: 20140725

REACTIONS (2)
  - Injection site pain [Unknown]
  - Off label use [Unknown]
